FAERS Safety Report 15080076 (Version 16)
Quarter: 2021Q3

REPORT INFORMATION
  Report Type: Report from Study
  Country: CA (occurrence: CA)
  Receive Date: 20180627
  Receipt Date: 20210809
  Transmission Date: 20211014
  Serious: Yes (Other)
  Sender: FDA-Public Use
  Company Number: PHHY2018CA076478

PATIENT
  Age: 68 Year
  Sex: Female

DRUGS (3)
  1. SANDOSTATIN LAR DEPOT [Suspect]
     Active Substance: OCTREOTIDE ACETATE
  2. SANDOSTATIN LAR DEPOT [Suspect]
     Active Substance: OCTREOTIDE ACETATE
  3. SANDOSTATIN LAR DEPOT [Suspect]
     Active Substance: OCTREOTIDE ACETATE
     Indication: CARCINOID TUMOUR
     Dosage: 30 MG, Q4W (EVERY 4 WEEKS)
     Route: 030
     Dates: start: 20180329

REACTIONS (17)
  - Pain in extremity [Recovered/Resolved]
  - Peripheral swelling [Recovered/Resolved]
  - Injection site vesicles [Recovered/Resolved]
  - Discomfort [Recovering/Resolving]
  - Heart rate increased [Unknown]
  - Thrombosis [Unknown]
  - Muscle spasms [Unknown]
  - Urinary tract infection [Unknown]
  - Vomiting [Unknown]
  - Needle issue [Unknown]
  - Upper respiratory tract infection [Unknown]
  - Mass [Unknown]
  - Blood pressure increased [Unknown]
  - Anxiety [Unknown]
  - Fatigue [Unknown]
  - Lower respiratory tract infection [Recovering/Resolving]
  - Chronic obstructive pulmonary disease [Unknown]

NARRATIVE: CASE EVENT DATE: 20180426
